FAERS Safety Report 23770569 (Version 5)
Quarter: 2025Q1

REPORT INFORMATION
  Report Type: Spontaneous
  Country: JP (occurrence: JP)
  Receive Date: 20240422
  Receipt Date: 20250121
  Transmission Date: 20250409
  Serious: Yes (Hospitalization)
  Sender: ELI LILLY AND COMPANY
  Company Number: JP-ELI_LILLY_AND_COMPANY-JP202403004466

PATIENT
  Age: 70 Year
  Sex: Male
  Weight: 94.4 kg

DRUGS (14)
  1. MOUNJARO [Suspect]
     Active Substance: TIRZEPATIDE
     Indication: Diabetes mellitus
     Route: 058
     Dates: start: 20230608
  2. MOUNJARO [Suspect]
     Active Substance: TIRZEPATIDE
     Dosage: 5 MG, WEEKLY (1/W)
     Route: 058
  3. NIFEDIPINE [Concomitant]
     Active Substance: NIFEDIPINE
     Indication: Hypertension
     Dosage: 40 MG, DAILY
     Route: 048
  4. CARVEDILOL DSEP [Concomitant]
     Indication: Hypertension
     Dosage: 10 MG, DAILY
     Route: 048
  5. VONOPRAZAN FUMARATE [Concomitant]
     Active Substance: VONOPRAZAN FUMARATE
     Indication: Hyperchlorhydria
     Dosage: 10 MG, DAILY
     Route: 048
  6. PITAVASTATIN CALCIUM KOG [Concomitant]
     Indication: Hypercholesterolaemia
     Dosage: 2 MG, DAILY
     Route: 048
  7. CALCIUM CARBONATE [Concomitant]
     Active Substance: CALCIUM CARBONATE
     Indication: Renal failure
     Route: 048
  8. MITIGLINIDE CA OD FUSO [Concomitant]
     Indication: Diabetes mellitus
     Route: 048
  9. MIGLITOL OD TOWA [Concomitant]
     Indication: Diabetes mellitus
     Route: 048
  10. LANTHANUM CARBONATE [Concomitant]
     Active Substance: LANTHANUM CARBONATE
     Indication: Renal failure
     Route: 048
  11. DOXAZOSIN [Concomitant]
     Active Substance: DOXAZOSIN MESYLATE
     Indication: Hypertension
     Route: 048
  12. AZILSARTAN TAKEDA TEVA [Concomitant]
     Indication: Hypertension
     Dosage: 20 MG, DAILY
     Route: 048
  13. EVOCALCET [Concomitant]
     Active Substance: EVOCALCET
     Indication: Renal failure
     Dosage: 1 MG, DAILY
     Route: 048
  14. ZOLPIDEM TARTRATE [Concomitant]
     Active Substance: ZOLPIDEM TARTRATE
     Indication: Insomnia
     Dosage: 5 MG, DAILY
     Route: 048

REACTIONS (1)
  - Thrombotic cerebral infarction [Recovered/Resolved]

NARRATIVE: CASE EVENT DATE: 20240212
